FAERS Safety Report 5780056-4 (Version None)
Quarter: 2008Q2

REPORT INFORMATION
  Report Type: 
  Country: None (occurrence: None)
  Receive Date: 20080620
  Receipt Date: 20080619
  Transmission Date: 20081010
  Serious: Yes (Death)
  Sender: FDA-Public Use
  Company Number: JP-TEVA-169738ISR

PATIENT
  Age: 64 Year
  Sex: Male

DRUGS (5)
  1. CISPLATIN [Suspect]
     Indication: RECTAL CANCER
     Dates: start: 20070917, end: 20070917
  2. IRINOTECAN HCL [Suspect]
     Indication: RECTAL CANCER
     Dates: start: 20070917, end: 20070917
  3. LAMIVUDINE [Concomitant]
     Route: 048
     Dates: start: 20071010
  4. METHYLPREDNISOLONE [Concomitant]
     Route: 048
     Dates: start: 20071010
  5. PLASMA PROTEIN FRACTION (HUMAN) [Concomitant]
     Route: 048
     Dates: start: 20071014

REACTIONS (4)
  - BRAIN OEDEMA [None]
  - DEATH [None]
  - GASTROINTESTINAL HAEMORRHAGE [None]
  - HEPATITIS B [None]
